FAERS Safety Report 7446135-0 (Version None)
Quarter: 2011Q2

REPORT INFORMATION
  Report Type: 
  Country: None (occurrence: None)
  Receive Date: 20110429
  Receipt Date: 20110421
  Transmission Date: 20111010
  Serious: Yes (Death)
  Sender: FDA-Public Use
  Company Number: B0697449A

PATIENT
  Sex: Male
  Weight: 105 kg

DRUGS (15)
  1. ARIXTRA [Suspect]
     Indication: PULMONARY EMBOLISM
     Dosage: 7.5MG PER DAY
     Route: 058
     Dates: start: 20101215, end: 20101219
  2. APROVEL [Concomitant]
     Dosage: 150MG PER DAY
  3. ZOCOR [Concomitant]
  4. LASILIX [Concomitant]
     Route: 065
  5. PREVISCAN [Suspect]
     Dosage: 1UNIT PER DAY
     Route: 065
  6. GLUCOPHAGE [Concomitant]
     Dosage: 500MG THREE TIMES PER DAY
  7. SOLMUCOL [Concomitant]
  8. INSULINE [Concomitant]
  9. DILTIAZEM HCL [Concomitant]
  10. OGAST [Concomitant]
  11. NITRODERM [Concomitant]
  12. KARDEGIC [Suspect]
     Dosage: 75MG PER DAY
     Route: 065
  13. ROCEPHIN [Concomitant]
  14. FLAGYL [Concomitant]
  15. DAFALGAN [Concomitant]

REACTIONS (7)
  - INTRA-ABDOMINAL HAEMATOMA [None]
  - BLOOD ELECTROLYTES ABNORMAL [None]
  - ABDOMINAL PAIN [None]
  - UNDERDOSE [None]
  - WHITE BLOOD CELL COUNT INCREASED [None]
  - ANAEMIA [None]
  - HYPOTHERMIA [None]
